FAERS Safety Report 18991302 (Version 2)
Quarter: 2022Q3

REPORT INFORMATION
  Report Type: Spontaneous
  Country: US (occurrence: US)
  Receive Date: 20210310
  Receipt Date: 20220325
  Transmission Date: 20221027
  Serious: Yes (Other)
  Sender: FDA-Public Use
  Company Number: US-INCYTE CORPORATION-2021IN001800

PATIENT

DRUGS (3)
  1. JAKAFI [Suspect]
     Active Substance: RUXOLITINIB
     Indication: Chronic graft versus host disease in skin
     Dosage: 5 MILLIGRAM, BID (MAXIMUM DAILY DOSE WAS 20 MG)
     Route: 048
  2. JAKAFI [Suspect]
     Active Substance: RUXOLITINIB
     Indication: Chronic graft versus host disease in eye
  3. JAKAFI [Suspect]
     Active Substance: RUXOLITINIB
     Indication: Chronic graft versus host disease in intestine

REACTIONS (7)
  - Escherichia urinary tract infection [Unknown]
  - Clostridium difficile colitis [Unknown]
  - Urinary tract infection bacterial [Unknown]
  - Thrombocytopenia [Unknown]
  - Neutropenia [Unknown]
  - Therapy partial responder [Unknown]
  - Off label use [Unknown]
